FAERS Safety Report 12517847 (Version 1)
Quarter: 2016Q2

REPORT INFORMATION
  Report Type: Spontaneous
  Country: US (occurrence: US)
  Receive Date: 20160630
  Receipt Date: 20160630
  Transmission Date: 20160815
  Serious: Yes (Hospitalization)
  Sender: FDA-Public Use
  Company Number: US-JUBILANT CADISTA PHARMACEUTICALS-2016JUB00244

PATIENT
  Age: 62 Year
  Sex: Male

DRUGS (1)
  1. PREDNISONE. [Suspect]
     Active Substance: PREDNISONE
     Indication: DERMATITIS CONTACT
     Dosage: 100 MG, 1X/DAY, ON THE FIRST DAY, FOLLOWED BY A 10-DAY TAPER
     Route: 065

REACTIONS (3)
  - Steatohepatitis [Recovered/Resolved]
  - Acute hepatic failure [Recovered/Resolved]
  - Hepatic encephalopathy [Recovered/Resolved]
